FAERS Safety Report 7321553-X (Version None)
Quarter: 2011Q1

REPORT INFORMATION
  Report Type: 
  Country: None (occurrence: None)
  Receive Date: 20110228
  Receipt Date: 20100414
  Transmission Date: 20110831
  Serious: No
  Sender: FDA-Public Use
  Company Number: A0855009A

PATIENT
  Age: 61 Year
  Sex: Female

DRUGS (8)
  1. OMEPRAZOLE [Concomitant]
  2. BONIVA [Concomitant]
  3. PREMARIN [Concomitant]
  4. LIPITOR [Concomitant]
  5. VALTREX [Suspect]
     Indication: HERPES ZOSTER
     Dosage: 1000MG THREE TIMES PER DAY
     Route: 048
     Dates: start: 20090901
  6. WELLBUTRIN SR [Concomitant]
  7. LIALDA [Concomitant]
  8. LIDOCAINE [Concomitant]

REACTIONS (2)
  - OVERDOSE [None]
  - DRUG INEFFECTIVE [None]
